FAERS Safety Report 14761692 (Version 1)
Quarter: 2018Q2

REPORT INFORMATION
  Report Type: Spontaneous
  Country: DE (occurrence: DE)
  Receive Date: 20180416
  Receipt Date: 20180416
  Transmission Date: 20180711
  Serious: Yes (Hospitalization, Other)
  Sender: FDA-Public Use
  Company Number: DE-CONCORDIA PHARMACEUTICALS INC.-E2B_00011089

PATIENT
  Sex: Female

DRUGS (20)
  1. LIPEGFILGRASTIM [Suspect]
     Active Substance: LIPEGFILGRASTIM
     Dosage: 6 MG, DAY 4 AFTER CHEMO
     Route: 058
     Dates: start: 20170320
  2. DOXORUBICIN [Suspect]
     Active Substance: DOXORUBICIN
     Indication: B-CELL LYMPHOMA
     Dosage: 50 MG/M2, Q2WK (LAST CYCLE OF CHOP STARTED PRIOR TO SAE: 28/FEB/2017)
     Route: 042
     Dates: start: 20170228
  3. PEGFILGRASTIM [Suspect]
     Active Substance: PEGFILGRASTIM
     Indication: B-CELL LYMPHOMA
     Dosage: 6 MG, DAY 4 AFTER CHEMO
     Route: 058
     Dates: start: 201703
  4. COLECALCIFEROL [Concomitant]
     Active Substance: CHOLECALCIFEROL
     Indication: VITAMIN SUPPLEMENTATION
     Dosage: 40000 IU, QWK (1 IN 1 WK)
     Route: 048
     Dates: start: 20170219
  5. ACICLOVIR [Concomitant]
     Active Substance: ACYCLOVIR
     Indication: INFECTION PROPHYLAXIS
     Dosage: 400 MG, 4 IN 1 D
     Route: 048
     Dates: start: 20170228
  6. ALLOPURINOL. [Concomitant]
     Active Substance: ALLOPURINOL
     Indication: PROPHYLAXIS
     Dosage: 300 MG, 1 IN 1 D
     Route: 048
     Dates: start: 201702
  7. PREDNISOLONE. [Suspect]
     Active Substance: PREDNISOLONE
     Indication: B-CELL LYMPHOMA
     Dosage: 100 MG, 1 IN 1 D, FOR 5 DAYS
     Route: 048
     Dates: start: 20170228
  8. PREDNISOLONE. [Suspect]
     Active Substance: PREDNISOLONE
     Dosage: 100 MG, 1 IN 1 D, FOR 5 DAYS
     Dates: start: 20170317
  9. RITUXIMAB. [Suspect]
     Active Substance: RITUXIMAB
     Indication: B-CELL LYMPHOMA
     Dosage: 375 MG/M2, Q2WK (MOST RECENT CYCLE NUMBER: 1, DATE LAST RITUXIMAB GIVEN PRIOR TO SAE: 03/MAR/2017)
     Route: 042
     Dates: start: 20170223
  10. SULFAMETHOXAZOLE W/TRIMETHOPRIM [Concomitant]
     Active Substance: SULFAMETHOXAZOLE\TRIMETHOPRIM
     Dosage: 960 MG, UNK 2/D, SATURDAY/SUNDAY
     Route: 048
     Dates: end: 20170301
  11. RITUXIMAB. [Suspect]
     Active Substance: RITUXIMAB
     Dosage: 375 MG/M2, Q2WK (MOST RECENT CYCLE NUMBER: 2, DATE LAST RITUXIMAB GIVEN PRIOR TO SAE: 16/MAR/2017)
     Route: 042
     Dates: start: 20170316
  12. CYCLOPHOSPHAMIDE. [Suspect]
     Active Substance: CYCLOPHOSPHAMIDE
     Dosage: 750 MG/M2, Q2WK (LAST CYCLE OF CHOP STARTED PRIOR TO SAE: 28/FEB/2017)
     Route: 042
     Dates: start: 20170228
  13. PANTOPRAZOL [Concomitant]
     Active Substance: PANTOPRAZOLE SODIUM
     Indication: PROPHYLAXIS
     Dosage: 40 MG, UNK (ON DEMAND)
     Route: 048
     Dates: start: 201701
  14. CIPROFLOXACIN. [Concomitant]
     Active Substance: CIPROFLOXACIN
     Indication: INFECTION PROPHYLAXIS
     Dosage: 500 MG, 2 IN 1 D
     Route: 048
     Dates: start: 20170305
  15. DOXORUBICIN [Suspect]
     Active Substance: DOXORUBICIN
     Dosage: 50 MG/M2, Q2WK (LAST CYCLE OF CHOP STARTED PRIOR TO SAE:17/MAR/2017)
     Route: 042
     Dates: start: 20170317
  16. VINCRISTINE [Suspect]
     Active Substance: VINCRISTINE
     Indication: B-CELL LYMPHOMA
     Dosage: 2 MG/M2, Q2WK (LAST CYCLE OF CHOP STARTED PRIOR TO SAE: 17/MAR/2017)
     Route: 042
     Dates: start: 20170317
  17. VINCRISTINE [Suspect]
     Active Substance: VINCRISTINE
     Dosage: 2 MG/M2, Q2WK (LAST CYCLE OF CHOP STARTED PRIOR TO SAE: 28/FEB/2017)
     Route: 042
     Dates: start: 20170228
  18. CYCLOPHOSPHAMIDE. [Suspect]
     Active Substance: CYCLOPHOSPHAMIDE
     Indication: B-CELL LYMPHOMA
     Dosage: 750 MG/M2, Q2WK (LAST CYCLE OF CHOP STARTED PRIOR TO SAE:17/MAR/2017)
     Route: 042
     Dates: start: 20170317
  19. AMPHOTERICIN B. [Concomitant]
     Active Substance: AMPHOTERICIN B
     Indication: PROPHYLAXIS
     Dosage: 2 DF, TID (6/D, 2-2-2)
     Route: 048
     Dates: start: 20170306
  20. LIPEGFILGRASTIM [Suspect]
     Active Substance: LIPEGFILGRASTIM
     Indication: B-CELL LYMPHOMA
     Dosage: 6 MG, DAY 4 AFTER CHEMO
     Route: 058
     Dates: start: 20170303

REACTIONS (3)
  - Ileus [Recovered/Resolved]
  - Large intestinal obstruction [Recovered/Resolved]
  - Febrile neutropenia [Unknown]

NARRATIVE: CASE EVENT DATE: 20170312
